FAERS Safety Report 7416167-7 (Version None)
Quarter: 2011Q2

REPORT INFORMATION
  Report Type: 
  Country: None (occurrence: None)
  Receive Date: 20110414
  Receipt Date: 20110317
  Transmission Date: 20111010
  Serious: No
  Sender: FDA-Public Use
  Company Number: US-B.I. PHARMACEUTICALS,INC./RIDGEFIELD-2011-BP-08598BP

PATIENT
  Age: 79 Year
  Sex: Male

DRUGS (7)
  1. CIPRO [Concomitant]
  2. FLUNISOLIDE [Concomitant]
  3. SAL PALMETTO [Concomitant]
  4. PRADAXA [Suspect]
     Indication: ATRIAL FIBRILLATION
     Dosage: 300 MG
     Route: 048
     Dates: start: 20110314
  5. BENZONATATE [Concomitant]
  6. CRESTOR [Concomitant]
  7. HYDROCHLOROTHIAZIDE [Concomitant]

REACTIONS (2)
  - INSOMNIA [None]
  - URINE OUTPUT INCREASED [None]
